FAERS Safety Report 5643127-9 (Version None)
Quarter: 2008Q1

REPORT INFORMATION
  Report Type: 
  Country: None (occurrence: None)
  Receive Date: 20080228
  Receipt Date: 20080218
  Transmission Date: 20080703
  Serious: Yes (Other)
  Sender: FDA-Public Use
  Company Number: DE-ROCHE-547897

PATIENT
  Age: 80 Year
  Sex: Female
  Weight: 73.9 kg

DRUGS (1)
  1. MIRCERA [Suspect]
     Route: 058
     Dates: start: 20071217, end: 20080115

REACTIONS (6)
  - BACK PAIN [None]
  - BLOOD GLUCOSE INCREASED [None]
  - GAIT DISTURBANCE [None]
  - HEADACHE [None]
  - NAUSEA [None]
  - PAIN IN EXTREMITY [None]
